FAERS Safety Report 20308460 (Version 1)
Quarter: 2022Q1

REPORT INFORMATION
  Report Type: Spontaneous
  Country: US (occurrence: US)
  Receive Date: 20220107
  Receipt Date: 20220107
  Transmission Date: 20220423
  Serious: No
  Sender: FDA-Public Use
  Company Number: US-BRISTOL-MYERS SQUIBB COMPANY-BMS-2021-142724

PATIENT
  Sex: Female

DRUGS (2)
  1. HYDREA [Suspect]
     Active Substance: HYDROXYUREA
     Indication: Thrombocytosis
     Dosage: 500 MILLIGRAM DAILY
     Route: 048
     Dates: start: 20211116
  2. HYDREA [Suspect]
     Active Substance: HYDROXYUREA
     Dosage: 1000 MILLIGAM DAILY
     Route: 048

REACTIONS (1)
  - Intentional product use issue [Unknown]

NARRATIVE: CASE EVENT DATE: 20211116
